FAERS Safety Report 4393546-6 (Version None)
Quarter: 2004Q3

REPORT INFORMATION
  Report Type: 
  Country: None (occurrence: None)
  Receive Date: 20040706
  Receipt Date: 20040706
  Transmission Date: 20050211
  Serious: Yes (Life-Threatening, Hospitalization)
  Sender: FDA-Public Use
  Company Number: None

PATIENT
  Age: 52 Year
  Sex: Female
  Weight: 56 kg

DRUGS (1)
  1. IMIPENEM/CILASTATIN INJECTION [Suspect]
     Indication: PNEUMONIA
     Dosage: 500 MG IV
     Route: 042
     Dates: start: 20040124, end: 20040201

REACTIONS (4)
  - CLOSTRIDIUM COLITIS [None]
  - MULTI-ORGAN FAILURE [None]
  - SEPSIS [None]
  - TOXIC DILATATION OF COLON [None]
